FAERS Safety Report 4280045-5 (Version None)
Quarter: 2004Q1

REPORT INFORMATION
  Report Type: 
  Country: None (occurrence: None)
  Receive Date: 20040126
  Receipt Date: 20040112
  Transmission Date: 20041129
  Serious: Yes (Other)
  Sender: FDA-Public Use
  Company Number: 2003120087

PATIENT
  Age: 70 Year
  Sex: Female
  Weight: 59 kg

DRUGS (3)
  1. TAHOR (ATORVASTATIN) [Suspect]
     Indication: HYPERCHOLESTEROLAEMIA
     Dosage: 10 MG (DAILY)
     Dates: start: 20030101, end: 20031015
  2. AMLODIPINE [Suspect]
     Indication: HYPERTENSION
     Dosage: 5 MG ( DAILY), ORAL
     Route: 048
     Dates: start: 20011001, end: 20030101
  3. PERINDOPRIL (PERINDOPRIL) [Concomitant]

REACTIONS (10)
  - C-REACTIVE PROTEIN INCREASED [None]
  - INFLAMMATION [None]
  - OEDEMA PERIPHERAL [None]
  - PRURIGO [None]
  - PRURITUS [None]
  - PURULENT DISCHARGE [None]
  - PYREXIA [None]
  - RASH ERYTHEMATOUS [None]
  - RED BLOOD CELL SEDIMENTATION RATE INCREASED [None]
  - TREMOR [None]
